FAERS Safety Report 24368156 (Version 2)
Quarter: 2024Q4

REPORT INFORMATION
  Report Type: Spontaneous
  Country: JP (occurrence: JP)
  Receive Date: 20240926
  Receipt Date: 20241004
  Transmission Date: 20250114
  Serious: Yes (Death, Life-Threatening, Other)
  Sender: JAZZ
  Company Number: JP-JAZZ PHARMACEUTICALS-2024-JP-016172

PATIENT
  Age: 82 Year
  Sex: Male

DRUGS (1)
  1. VYXEOS [Suspect]
     Active Substance: CYTARABINE\DAUNORUBICIN
     Indication: Acute myeloid leukaemia
     Dosage: 100 UNITS/METER SQUARE/DAY
     Route: 042
     Dates: start: 20240902, end: 20240906

REACTIONS (4)
  - Acute myeloid leukaemia [Fatal]
  - Disseminated intravascular coagulation [Fatal]
  - Cerebral infarction [Fatal]
  - Acute myeloid leukaemia recurrent [Fatal]

NARRATIVE: CASE EVENT DATE: 20240826
